FAERS Safety Report 5071711-2 (Version None)
Quarter: 2006Q3

REPORT INFORMATION
  Report Type: 
  Country: None (occurrence: None)
  Receive Date: 20060804
  Receipt Date: 20060612
  Transmission Date: 20061208
  Serious: Yes (Other)
  Sender: FDA-Public Use
  Company Number: PHEH2006US07703

PATIENT
  Age: 78 Year
  Sex: Female

DRUGS (10)
  1. DECADRON [Concomitant]
     Dosage: 8-10MG QWK
     Route: 042
     Dates: start: 19981019
  2. ZOFRAN [Concomitant]
     Dosage: 8MG QWK
     Dates: start: 19981019, end: 20060207
  3. TAXOTERE [Concomitant]
     Dosage: 35MG  QWK
     Dates: start: 20060207
  4. XELODA [Concomitant]
     Dosage: 1500MG BID X14D
  5. CYTOXAN [Concomitant]
     Dosage: 80MG Q3WK
     Dates: start: 19981019
  6. METHOTREXATE [Concomitant]
     Dosage: 55MG Q3WK
     Dates: start: 19981019
  7. FLUOROURACIL [Concomitant]
     Dosage: 800MG Q3WK
     Dates: start: 19981019
  8. EPOGEN [Concomitant]
     Dosage: 40,000 IU
     Dates: start: 20020827
  9. ZOMETA [Suspect]
     Dosage: 4 MG, Q4WKS
     Dates: start: 20050401, end: 20060207
  10. ZOMETA [Suspect]
     Dosage: 4MG, Q3WKS
     Dates: start: 20020129, end: 20050401

REACTIONS (7)
  - DENTAL ALVEOLAR ANOMALY [None]
  - GINGIVAL INFECTION [None]
  - GINGIVAL SWELLING [None]
  - GINGIVITIS [None]
  - INFECTION [None]
  - OSTEONECROSIS [None]
  - PAIN IN JAW [None]
